FAERS Safety Report 8284970-X (Version None)
Quarter: 2012Q2

REPORT INFORMATION
  Report Type: 
  Country: None (occurrence: None)
  Receive Date: 20120413
  Receipt Date: 20111118
  Transmission Date: 20120825
  Serious: Yes (Other)
  Sender: FDA-Public Use
  Company Number: US-ASTRAZENECA-2011SE00226

PATIENT
  Age: 84 Year
  Sex: Female
  Weight: 63.5 kg

DRUGS (9)
  1. CALCIUM CARBONATE [Concomitant]
  2. BLOOD PRESSURE MEDICATION [Concomitant]
  3. CALCIUM CARBONATE [Concomitant]
  4. NEXIUM [Suspect]
     Indication: GASTROOESOPHAGEAL REFLUX DISEASE
     Route: 048
     Dates: start: 20010101
  5. PRILOSEC [Suspect]
     Route: 048
     Dates: start: 19900101
  6. WATER PILL [Concomitant]
  7. NEXIUM [Suspect]
     Indication: DYSPEPSIA
     Route: 048
     Dates: start: 20010101
  8. CARDIZEM [Concomitant]
  9. METAMUCIL-2 [Concomitant]

REACTIONS (9)
  - HYPERTENSION [None]
  - DRY MOUTH [None]
  - ABDOMINAL DISCOMFORT [None]
  - CONSTIPATION [None]
  - OSTEOPOROSIS [None]
  - ANKLE FRACTURE [None]
  - MULTIPLE FRACTURES [None]
  - INCORRECT DRUG ADMINISTRATION DURATION [None]
  - INAPPROPRIATE SCHEDULE OF DRUG ADMINISTRATION [None]
